FAERS Safety Report 9017197 (Version 3)
Quarter: 2014Q1

REPORT INFORMATION
  Report Type: Report from Study
  Country: PL (occurrence: PL)
  Receive Date: 20130117
  Receipt Date: 20140304
  Transmission Date: 20141002
  Serious: Yes (Death, Hospitalization)
  Sender: FDA-Public Use
  Company Number: PL-PFIZER INC-2013017989

PATIENT
  Age: 60 Year
  Sex: Female

DRUGS (13)
  1. SUNITINIB MALATE [Suspect]
     Indication: RENAL CELL CARCINOMA
     Dosage: 37.5 MG, UNK
     Dates: start: 20120507, end: 20121223
  2. CYCLOPHOSPHAMIDE [Suspect]
     Indication: RENAL CELL CARCINOMA
     Dosage: UNK
     Dates: start: 20120611
  3. IMA901 [Suspect]
     Indication: RENAL CELL CARCINOMA
     Dosage: UNK
     Dates: start: 20120613, end: 20120925
  4. GRANULOCYTE COLONY-STIMULATING FACTOR NOS [Suspect]
     Indication: RENAL CELL CARCINOMA
     Dosage: UNK
     Dates: start: 20120613, end: 20120925
  5. NORVASC [Concomitant]
     Indication: HYPERTENSION
     Dosage: UNK
     Dates: start: 200712
  6. APO-RAMI [Concomitant]
     Indication: HYPERTENSION
     Dosage: UNK
     Dates: start: 200712
  7. EUTHYROX [Concomitant]
     Indication: HYPOTHYROIDISM
     Dosage: 25
     Dates: start: 20120718, end: 20121021
  8. EUTHYROX [Concomitant]
     Dosage: 50
     Dates: start: 20121022, end: 20121202
  9. EUTHYROX [Concomitant]
     Dosage: 75
     Dates: start: 20121203
  10. LOPERAMID [Concomitant]
     Indication: DIARRHOEA
     Dosage: UNK
  11. KALIPOZ [Concomitant]
     Indication: HYPOKALAEMIA
     Dosage: UNK
     Dates: start: 20121122, end: 20121127
  12. CLEXANE [Concomitant]
     Indication: PULMONARY EMBOLISM
     Dosage: UNK
     Dates: start: 20121122, end: 20121127
  13. CLEXANE [Concomitant]
     Indication: DYSPNOEA

REACTIONS (2)
  - Shock [Fatal]
  - Respiratory failure [Fatal]
